FAERS Safety Report 24888613 (Version 1)
Quarter: 2025Q1

REPORT INFORMATION
  Report Type: Spontaneous
  Country: ES (occurrence: ES)
  Receive Date: 20250127
  Receipt Date: 20250127
  Transmission Date: 20250409
  Serious: Yes (Other)
  Sender: JOHNSON AND JOHNSON
  Company Number: ES-JNJFOC-20241247598

PATIENT

DRUGS (1)
  1. CARVYKTI [Suspect]
     Active Substance: CILTACABTAGENE AUTOLEUCEL
     Indication: Plasma cell myeloma refractory
     Route: 042

REACTIONS (8)
  - Neutropenia [Unknown]
  - Thrombocytopenia [Unknown]
  - Immune effector cell-associated neurotoxicity syndrome [Unknown]
  - Cytokine release syndrome [Unknown]
  - Febrile neutropenia [Unknown]
  - Anaemia [Unknown]
  - Central nervous system haemorrhage [Unknown]
  - Infection [Unknown]
